FAERS Safety Report 6082818-5 (Version None)
Quarter: 2009Q1

REPORT INFORMATION
  Report Type: 
  Country: None (occurrence: None)
  Receive Date: 20090218
  Receipt Date: 20090206
  Transmission Date: 20090719
  Serious: Yes (Hospitalization)
  Sender: FDA-Public Use
  Company Number: FI-ELI_LILLY_AND_COMPANY-FI200902001214

PATIENT
  Sex: Male

DRUGS (7)
  1. BYETTA [Suspect]
     Indication: DIABETES MELLITUS
     Dosage: 5 UG, 2/D
     Route: 058
     Dates: start: 20081215, end: 20090120
  2. EMCONCOR [Concomitant]
     Dosage: 5 MG, 2/D
     Route: 065
  3. FURESIS [Concomitant]
     Dosage: 40 MG, DAILY (1/D)
     Route: 065
  4. COZAAR [Concomitant]
     Dosage: 50 MG, DAILY (1/D)
     Route: 065
  5. LIPITOR [Concomitant]
     Dosage: 20 MG, DAILY (1/D)
     Route: 065
  6. DIFORMIN [Concomitant]
     Dosage: 500 MG, 3/D
     Route: 065
  7. PRIMASPAN [Concomitant]
     Dosage: 100 MG, DAILY (1/D)
     Route: 065

REACTIONS (4)
  - ABDOMINAL PAIN UPPER [None]
  - ARRHYTHMIA [None]
  - CHEST PAIN [None]
  - URINARY INCONTINENCE [None]
